FAERS Safety Report 22373878 (Version 1)
Quarter: 2023Q2

REPORT INFORMATION
  Report Type: Spontaneous
  Country: BR (occurrence: BR)
  Receive Date: 20230526
  Receipt Date: 20230526
  Transmission Date: 20230722
  Serious: Yes (Other)
  Sender: FDA-Public Use
  Company Number: BR-TEVA BRAZIL-2023-BR-2889431

PATIENT
  Sex: Female

DRUGS (4)
  1. AZILECT [Suspect]
     Active Substance: RASAGILINE MESYLATE
     Indication: Parkinson^s disease
     Dosage: 1 MILLIGRAM DAILY; 1 PILL (STRENGTH NOT SPECIFIED) IN THE MORNING
     Route: 048
     Dates: start: 2020
  2. AZILECT [Suspect]
     Active Substance: RASAGILINE MESYLATE
     Dosage: 1 MILLIGRAM DAILY; 1 PILL (STRENGTH NOT SPECIFIED) IN THE MORNING
     Route: 048
     Dates: start: 2020
  3. Prolopa DR [Concomitant]
     Indication: Product used for unknown indication
     Dosage: 250
  4. MINERGI [Concomitant]
     Indication: Product used for unknown indication
     Dosage: AFTER BREAKFAST

REACTIONS (4)
  - Motor dysfunction [Not Recovered/Not Resolved]
  - Drug effect less than expected [Unknown]
  - Product packaging quantity issue [Unknown]
  - Product quality issue [Unknown]
